FAERS Safety Report 6679298-5 (Version None)
Quarter: 2010Q2

REPORT INFORMATION
  Report Type: 
  Country: None (occurrence: None)
  Receive Date: 20100408
  Receipt Date: 20090710
  Transmission Date: 20101027
  Serious: No
  Sender: FDA-Public Use
  Company Number: 2009-00467

PATIENT
  Age: 62 Year
  Sex: Male
  Weight: 72.5755 kg

DRUGS (2)
  1. ZICAM COLD REMEDY NASAL GEL [Suspect]
     Dosage: AS DIRECTED - 2-3 DOSES, MID NOV-2006 - 2-3 DOSES
     Dates: start: 20061101
  2. DILANTIN [Concomitant]

REACTIONS (2)
  - ANOSMIA [None]
  - NASAL DISCOMFORT [None]
